FAERS Safety Report 19848604 (Version 4)
Quarter: 2021Q4

REPORT INFORMATION
  Report Type: Spontaneous
  Country: JP (occurrence: JP)
  Receive Date: 20210918
  Receipt Date: 20211228
  Transmission Date: 20220303
  Serious: Yes (Hospitalization)
  Sender: FDA-Public Use
  Company Number: JP-002147023-NVSJ2021JP013507

PATIENT
  Age: 82 Year
  Sex: Female

DRUGS (4)
  1. XOLAIR [Suspect]
     Active Substance: OMALIZUMAB
     Indication: Chronic spontaneous urticaria
     Dosage: LAST DOSE WAS ADMINISTERED ON 11/AUG/2021
     Route: 058
     Dates: start: 20210811
  2. OLMESARTAN [Concomitant]
     Active Substance: OLMESARTAN
     Indication: Hypertension
     Route: 048
  3. OLOPATADINE [Concomitant]
     Active Substance: OLOPATADINE
     Indication: Chronic spontaneous urticaria
     Route: 048
     Dates: start: 20210705, end: 20210825
  4. LAFUTIDINE [Concomitant]
     Active Substance: LAFUTIDINE
     Indication: Chronic spontaneous urticaria
     Route: 048
     Dates: start: 20200225, end: 20210825

REACTIONS (9)
  - Myalgia [Recovered/Resolved]
  - Movement disorder [Recovering/Resolving]
  - Gait disturbance [Unknown]
  - Malaise [Recovered/Resolved]
  - Pain in extremity [Recovered/Resolved]
  - Decreased appetite [Recovered/Resolved]
  - COVID-19 pneumonia [Recovered/Resolved]
  - Malaise [Unknown]
  - Physical deconditioning [Unknown]

NARRATIVE: CASE EVENT DATE: 20210814
